FAERS Safety Report 16828260 (Version 1)
Quarter: 2019Q3

REPORT INFORMATION
  Report Type: Spontaneous
  Country: IT (occurrence: IT)
  Receive Date: 20190919
  Receipt Date: 20190919
  Transmission Date: 20191005
  Serious: Yes (Hospitalization)
  Sender: FDA-Public Use
  Company Number: PHHY2019IT215398

PATIENT
  Age: 77 Year
  Sex: Male

DRUGS (4)
  1. TORA-DOL [Interacting]
     Active Substance: KETOROLAC TROMETHAMINE
     Indication: PAIN
     Dosage: 14 DF, QD
     Route: 048
  2. VOLTAREN [Suspect]
     Active Substance: DICLOFENAC SODIUM
     Indication: PRODUCT USED FOR UNKNOWN INDICATION
     Route: 030
  3. TICLOPIDINE [Interacting]
     Active Substance: TICLOPIDINE
     Indication: ISCHAEMIC CARDIOMYOPATHY
     Route: 065
  4. MUSCORIL [Concomitant]
     Active Substance: THIOCOLCHICOSIDE
     Indication: MUSCLE CONTRACTURE
     Route: 030

REACTIONS (2)
  - Drug interaction [Recovering/Resolving]
  - Haematochezia [Recovering/Resolving]

NARRATIVE: CASE EVENT DATE: 20190827
